FAERS Safety Report 21008596 (Version 2)
Quarter: 2022Q3

REPORT INFORMATION
  Report Type: Spontaneous
  Country: US (occurrence: US)
  Receive Date: 20220627
  Receipt Date: 20220822
  Transmission Date: 20221026
  Serious: Yes (Other)
  Sender: FDA-Public Use
  Company Number: US-JNJFOC-20220640683

PATIENT
  Age: 6 Decade
  Sex: Female

DRUGS (5)
  1. ELMIRON [Suspect]
     Active Substance: PENTOSAN POLYSULFATE SODIUM
     Indication: Cystitis interstitial
     Route: 048
     Dates: end: 2016
  2. ELMIRON [Suspect]
     Active Substance: PENTOSAN POLYSULFATE SODIUM
     Route: 048
     Dates: end: 2017
  3. PREDNISOLONE [Concomitant]
     Active Substance: PREDNISOLONE
     Indication: Cataract operation
     Route: 065
     Dates: start: 2010
  4. PREDNISOLONE [Concomitant]
     Active Substance: PREDNISOLONE
     Indication: Sight disability
  5. PREDNISOLONE [Concomitant]
     Active Substance: PREDNISOLONE
     Indication: Herpes zoster

REACTIONS (4)
  - Maculopathy [Unknown]
  - Retinopathy [Not Recovered/Not Resolved]
  - Age-related macular degeneration [Not Recovered/Not Resolved]
  - Blindness [Unknown]

NARRATIVE: CASE EVENT DATE: 20060101
